FAERS Safety Report 8203433-0 (Version None)
Quarter: 2012Q1

REPORT INFORMATION
  Report Type: 
  Country: None (occurrence: None)
  Receive Date: 20120313
  Receipt Date: 20120305
  Transmission Date: 20120608
  Serious: Yes (Hospitalization)
  Sender: FDA-Public Use
  Company Number: DE-TEVA-323691USA

PATIENT
  Sex: Male
  Weight: 95 kg

DRUGS (12)
  1. SIMVASTATIN [Concomitant]
  2. TORSEMIDE [Concomitant]
  3. RAMIPRIL [Concomitant]
  4. RITUXIMAB [Suspect]
     Dates: start: 20110921
  5. INSULIN HUMAN [Concomitant]
  6. ACETYLSALICYLIC ACID SRT [Concomitant]
  7. BISOPROLOL FUMARATE [Concomitant]
  8. TAMSULOSIN HCL [Concomitant]
     Dates: start: 20110922
  9. MIRTAZAPINE [Concomitant]
  10. ACYCLOVIR [Concomitant]
     Dates: start: 20110922
  11. TREANDA [Suspect]
     Route: 042
     Dates: start: 20110826
  12. PANTOPRAZOLE [Concomitant]

REACTIONS (4)
  - DEVICE RELATED INFECTION [None]
  - INFECTION [None]
  - GASTRITIS [None]
  - POLYNEUROPATHY [None]
